FAERS Safety Report 7074348-9 (Version None)
Quarter: 2010Q4

REPORT INFORMATION
  Report Type: 
  Country: None (occurrence: None)
  Receive Date: 20101029
  Receipt Date: 20101025
  Transmission Date: 20110411
  Serious: Yes (Hospitalization)
  Sender: FDA-Public Use
  Company Number: US-GILEAD-2010-0032756

PATIENT
  Sex: Female

DRUGS (23)
  1. LETAIRIS [Suspect]
     Indication: PULMONARY ARTERIAL HYPERTENSION
     Route: 048
     Dates: start: 20100527
  2. ALDACTONE [Concomitant]
  3. FUROSEMIDE [Concomitant]
  4. HYDROCHLOROTHIAZIDE [Concomitant]
  5. AZOR [Concomitant]
  6. COREG [Concomitant]
  7. HYDROXYZINE [Concomitant]
  8. PROAIR HFA [Concomitant]
  9. K-DUR [Concomitant]
  10. REYATAZ [Concomitant]
  11. EPZICOM [Concomitant]
  12. DAPSONE [Concomitant]
  13. BYETTA [Concomitant]
  14. MIRTAZAPINE [Concomitant]
  15. LEVOTHYROXINE [Concomitant]
  16. SUDOGEST [Concomitant]
  17. HYDROCODONE BITARTRATE + ACETAMINOPHEN [Concomitant]
  18. ZOLPIDEM [Concomitant]
  19. CHLORDIAZEPOXIDE [Concomitant]
  20. OMEPRAZOLE [Concomitant]
  21. METFORMIN [Concomitant]
  22. BUTALBITAL APAP [Concomitant]
  23. ASACOL [Concomitant]

REACTIONS (2)
  - DYSPNOEA [None]
  - PNEUMONIA [None]
